FAERS Safety Report 4736670-8 (Version None)
Quarter: 2005Q3

REPORT INFORMATION
  Report Type: 
  Country: None (occurrence: None)
  Receive Date: 20050804
  Receipt Date: 20050720
  Transmission Date: 20060218
  Serious: Yes (Hospitalization, Disabling)
  Sender: FDA-Public Use
  Company Number: DSA_81334_2005

PATIENT
  Age: 13 Year
  Sex: Female
  Weight: 52.1637 kg

DRUGS (5)
  1. XYREM [Suspect]
     Indication: NARCOLEPSY
     Dosage: 7 G NIGHTLY PO
     Route: 048
     Dates: start: 20041101, end: 20050401
  2. PROPRANOLOL [Concomitant]
  3. FLORINEF [Concomitant]
  4. NEURONTIN [Concomitant]
  5. PROVIGIL [Concomitant]

REACTIONS (11)
  - DIFFICULTY IN WALKING [None]
  - DIZZINESS [None]
  - DYSPNOEA [None]
  - DYSSTASIA [None]
  - HEADACHE [None]
  - HEART RATE INCREASED [None]
  - LETHARGY [None]
  - MUSCULAR DYSTROPHY [None]
  - NARCOLEPSY [None]
  - PALLOR [None]
  - PARALYSIS [None]
